FAERS Safety Report 20574511 (Version 1)
Quarter: 2022Q1

REPORT INFORMATION
  Report Type: Other
  Country: CN (occurrence: None)
  Receive Date: 20220309
  Receipt Date: 20220309
  Transmission Date: 20220424
  Serious: Yes (Death)
  Sender: FDA-Public Use
  Company Number: CN-ROCHE-3045386

PATIENT
  Age: 50 Year
  Sex: Female
  Weight: 71 kg

DRUGS (2)
  1. AVASTIN [Suspect]
     Active Substance: BEVACIZUMAB
     Indication: Metastases to lymph nodes
     Route: 041
     Dates: start: 20170308
  2. AVASTIN [Suspect]
     Active Substance: BEVACIZUMAB
     Indication: Metastases to lung

REACTIONS (1)
  - Death [Fatal]

NARRATIVE: CASE EVENT DATE: 20220101
